FAERS Safety Report 4361942-9 (Version None)
Quarter: 2004Q2

REPORT INFORMATION
  Report Type: 
  Country: None (occurrence: None)
  Receive Date: 20040521
  Receipt Date: 20040204
  Transmission Date: 20050107
  Serious: No
  Sender: FDA-Public Use
  Company Number: US-GLAXOSMITHKLINE-A0496956A

PATIENT
  Age: 51 Year
  Sex: Female
  Weight: 69.1 kg

DRUGS (1)
  1. WELLBUTRIN [Suspect]
     Indication: DEPRESSION
     Dosage: 300MG PER DAY
     Route: 048
     Dates: start: 20031216, end: 20040130

REACTIONS (3)
  - PRURITUS [None]
  - RASH PRURITIC [None]
  - URTICARIA [None]
